FAERS Safety Report 25327410 (Version 1)
Quarter: 2025Q2

REPORT INFORMATION
  Report Type: Spontaneous
  Country: GB (occurrence: GB)
  Receive Date: 20250517
  Receipt Date: 20250517
  Transmission Date: 20250717
  Serious: Yes (Disabling)
  Sender: TEVA
  Company Number: GB-MHRA-TPP28351935C2567454YC1747152289837

PATIENT
  Age: 76 Year
  Sex: Male
  Weight: 83 kg

DRUGS (15)
  1. MIRTAZAPINE [Suspect]
     Active Substance: MIRTAZAPINE
     Indication: Ill-defined disorder
     Dosage: AT NIGHT
     Route: 065
     Dates: start: 20250407
  2. AMLODIPINE [Concomitant]
     Active Substance: AMLODIPINE BESYLATE
     Indication: Ill-defined disorder
     Dates: start: 20241210
  3. POTASSIUM BICARBONATE\SODIUM ALGINATE [Concomitant]
     Active Substance: POTASSIUM BICARBONATE\SODIUM ALGINATE
     Indication: Ill-defined disorder
     Dates: start: 20241210
  4. MICRALAX [Concomitant]
     Indication: Ill-defined disorder
     Dates: start: 20250407, end: 20250408
  5. ALBUTEROL [Concomitant]
     Active Substance: ALBUTEROL
     Indication: Ill-defined disorder
     Dosage: TWO PUFFS WHEN REQUIRED
     Dates: start: 20241210
  6. PANTOPRAZOLE [Concomitant]
     Active Substance: PANTOPRAZOLE
     Indication: Ill-defined disorder
     Dates: start: 20240730, end: 20250409
  7. HYDROXOCOBALAMIN [Concomitant]
     Active Substance: HYDROXOCOBALAMIN
     Indication: Ill-defined disorder
     Route: 030
     Dates: start: 20250411, end: 20250412
  8. GLYCERIN [Concomitant]
     Active Substance: GLYCERIN
     Indication: Ill-defined disorder
     Dates: start: 20250407, end: 20250412
  9. DOXYCYCLINE [Concomitant]
     Active Substance: DOXYCYCLINE
     Indication: Ill-defined disorder
     Dates: start: 20241210
  10. ATORVASTATIN [Concomitant]
     Active Substance: ATORVASTATIN
     Indication: Ill-defined disorder
     Dates: start: 20241210
  11. CITALOPRAM [Concomitant]
     Active Substance: CITALOPRAM
     Indication: Ill-defined disorder
     Dates: start: 20250513
  12. LOSARTAN [Concomitant]
     Active Substance: LOSARTAN
     Indication: Ill-defined disorder
     Dates: start: 20241210
  13. PROCHLORPERAZINE [Concomitant]
     Active Substance: PROCHLORPERAZINE
     Indication: Ill-defined disorder
     Dates: start: 20250306, end: 20250315
  14. NIZATIDINE [Concomitant]
     Active Substance: NIZATIDINE
     Indication: Ill-defined disorder
     Dates: start: 20241210, end: 20250409
  15. BUTYLSCOPOLAMINE BROMIDE [Concomitant]
     Active Substance: BUTYLSCOPOLAMINE BROMIDE
     Indication: Ill-defined disorder
     Dates: start: 20241210

REACTIONS (1)
  - Nightmare [Recovered/Resolved]
